FAERS Safety Report 9033062 (Version 1)
Quarter: 2013Q1

REPORT INFORMATION
  Report Type: Spontaneous
  Country: JP (occurrence: None)
  Receive Date: 20130110
  Receipt Date: 20130110
  Transmission Date: 20140127
  Serious: Yes (Other)
  Sender: FDA-Public Use
  Company Number: AE-SPE-2012-029

PATIENT
  Age: 2 Year
  Sex: 0

DRUGS (1)
  1. MEIACT MS FINE GRANULES (CEFDITOREN PIVOXIL) [Suspect]
     Route: 048

REACTIONS (2)
  - Convulsion [None]
  - Body temperature increased [None]
